FAERS Safety Report 22386148 (Version 2)
Quarter: 2025Q3

REPORT INFORMATION
  Report Type: Report from Study
  Country: US (occurrence: US)
  Receive Date: 20230530
  Receipt Date: 20250903
  Transmission Date: 20251021
  Serious: Yes (Other)
  Sender: SUNOVION
  Company Number: US-DSPHARMA-2023SUN000693

PATIENT
  Age: 45 Year
  Sex: Female

DRUGS (1)
  1. LATUDA [Suspect]
     Active Substance: LURASIDONE HYDROCHLORIDE
     Indication: Schizophrenia
     Route: 048

REACTIONS (4)
  - Type 2 diabetes mellitus [Unknown]
  - Libido decreased [Unknown]
  - Blood glucose increased [Unknown]
  - Somnolence [Unknown]
